FAERS Safety Report 25877805 (Version 1)
Quarter: 2025Q4

REPORT INFORMATION
  Report Type: Spontaneous
  Country: US (occurrence: US)
  Receive Date: 20251003
  Receipt Date: 20251003
  Transmission Date: 20260117
  Serious: No
  Sender: Haleon PLC
  Company Number: US-HALEON-2265588

PATIENT
  Age: 73 Year
  Sex: Female

DRUGS (1)
  1. VOLTAREN ARTHRITIS PAIN [Suspect]
     Active Substance: DICLOFENAC SODIUM
     Indication: Sciatica
     Dosage: TIME INTERVAL: 0.33333333 DAYS: 3 - APPLICATION (AP)
     Dates: start: 20250921

REACTIONS (3)
  - Drug effect less than expected [Unknown]
  - Off label use [Unknown]
  - Inappropriate schedule of product administration [Unknown]
